FAERS Safety Report 9734927 (Version 1)
Quarter: 2013Q4

REPORT INFORMATION
  Report Type: Spontaneous
  Country: US (occurrence: US)
  Receive Date: 20131206
  Receipt Date: 20131206
  Transmission Date: 20140711
  Serious: Yes (Other)
  Sender: FDA-Public Use
  Company Number: US-PFIZER INC-2013343101

PATIENT
  Sex: Female

DRUGS (2)
  1. EFFEXOR XR [Suspect]
     Indication: DEPRESSION
     Dosage: UNK
     Dates: end: 201311
  2. CELEBREX [Concomitant]
     Dosage: UNK

REACTIONS (9)
  - Suicidal ideation [Unknown]
  - Convulsion [Unknown]
  - Drug withdrawal syndrome [Unknown]
  - Feeling abnormal [Unknown]
  - Crying [Unknown]
  - Laziness [Unknown]
  - Hyperhidrosis [Unknown]
  - Dizziness [Unknown]
  - Emotional disorder [Unknown]
